FAERS Safety Report 9075913 (Version 1)
Quarter: 2013Q1

REPORT INFORMATION
  Report Type: Spontaneous
  Country: US (occurrence: US)
  Receive Date: 20130130
  Receipt Date: 20130130
  Transmission Date: 20140127
  Serious: Yes (Hospitalization)
  Sender: FDA-Public Use
  Company Number: US-AMGEN-USASP2013004762

PATIENT
  Age: 52 Year
  Sex: Female
  Weight: 69.84 kg

DRUGS (10)
  1. ENBREL [Suspect]
     Indication: PRODUCT USED FOR UNKNOWN INDICATION
     Dosage: 50 MG, QWK
     Route: 058
  2. AMLODIPIN                          /00972401/ [Concomitant]
     Dosage: 2.5 MG, UNK
  3. VENLAFAXIN [Concomitant]
     Dosage: 100 MG, UNK
  4. RANITIDIN [Concomitant]
     Dosage: 75 MG, UNK
  5. LEVOTHYROXIN [Concomitant]
     Dosage: 100 MUG, UNK
  6. ADVIL                              /00044201/ [Concomitant]
     Dosage: 200 MG, UNK
  7. BAYER CHILDREN^S ASPIRIN [Concomitant]
     Dosage: 81 MG, UNK
  8. FOLIC ACID [Concomitant]
     Dosage: UNK
  9. ETODOLAC [Concomitant]
     Dosage: 200 MG, UNK
  10. METHOTREXATE [Concomitant]
     Dosage: 1 G, UNK

REACTIONS (2)
  - Dehydration [Recovered/Resolved]
  - Pyrexia [Recovered/Resolved]
